FAERS Safety Report 14954881 (Version 1)
Quarter: 2018Q2

REPORT INFORMATION
  Report Type: Spontaneous
  Country: GB (occurrence: GB)
  Receive Date: 20180530
  Receipt Date: 20180530
  Transmission Date: 20180711
  Serious: Yes (Hospitalization)
  Sender: FDA-Public Use
  Company Number: GB-BAXTER-2018BAX015363

PATIENT
  Age: 75 Year
  Sex: Female
  Weight: 53.1 kg

DRUGS (5)
  1. PACLITAXEL. [Suspect]
     Active Substance: PACLITAXEL
     Indication: OVARIAN CANCER
     Route: 042
     Dates: start: 20160314
  2. DEXAMETHASONE. [Suspect]
     Active Substance: DEXAMETHASONE
     Indication: OVARIAN CANCER
     Route: 042
     Dates: start: 20160314
  3. RANITIDINE. [Suspect]
     Active Substance: RANITIDINE
     Indication: OVARIAN CANCER
     Route: 042
     Dates: start: 20160314
  4. SODIUM CHLORIDE 0.9% INTRAVENOUS INFUSION BP [Suspect]
     Active Substance: SODIUM CHLORIDE
     Indication: MEDICATION DILUTION
     Route: 042
     Dates: start: 20160314
  5. CHLORPHENIRAMINE. [Suspect]
     Active Substance: CHLORPHENIRAMINE
     Indication: OVARIAN CANCER
     Route: 042
     Dates: start: 20160314

REACTIONS (4)
  - Swelling [Unknown]
  - Lip swelling [Unknown]
  - Swelling face [Unknown]
  - Mouth swelling [Unknown]

NARRATIVE: CASE EVENT DATE: 201805
